FAERS Safety Report 12655662 (Version 2)
Quarter: 2017Q1

REPORT INFORMATION
  Report Type: Report from Study
  Country: US (occurrence: US)
  Receive Date: 20160816
  Receipt Date: 20170213
  Transmission Date: 20170428
  Serious: Yes (Hospitalization)
  Sender: FDA-Public Use
  Company Number: US-COVIS PHARMA S.A.R.L.-2016COV00065

PATIENT
  Age: 50 Year
  Sex: Female

DRUGS (9)
  1. RILUZOLE. [Suspect]
     Active Substance: RILUZOLE
     Dosage: 1 DOSAGE UNITS, 1X/DAY
     Route: 048
     Dates: start: 20160728, end: 20160729
  2. AMILORIDE [Suspect]
     Active Substance: AMILORIDE
     Dosage: 1 DOSAGE UNITS, 1X/DAY
     Dates: start: 20160728, end: 20160729
  3. RILUZOLE. [Suspect]
     Active Substance: RILUZOLE
     Dosage: 1 DOSAGE UNITS, 1X/DAY
     Route: 048
     Dates: start: 20160419
  4. FLUOXETINE [Suspect]
     Active Substance: FLUOXETINE HYDROCHLORIDE
     Dosage: 1 DOSAGE UNITS, 1X/DAY
     Route: 048
     Dates: start: 20160419
  5. AMILORIDE [Suspect]
     Active Substance: AMILORIDE
     Dosage: 1 DOSAGE UNITS, UNK
     Route: 048
     Dates: start: 20160419
  6. NITROFURANTOIN. [Concomitant]
     Active Substance: NITROFURANTOIN
     Dosage: UNK
     Dates: start: 20160627
  7. ZOPICLONE [Concomitant]
     Active Substance: ZOPICLONE
     Dosage: UNK
     Dates: start: 2013
  8. FLUOXETINE [Suspect]
     Active Substance: FLUOXETINE HYDROCHLORIDE
     Dosage: 1 DOSAGE UNITS, 1X/DAY
     Route: 048
     Dates: start: 20160728, end: 20160729
  9. AMITRIPTYLINE [Concomitant]
     Active Substance: AMITRIPTYLINE
     Dosage: UNK
     Dates: start: 201503

REACTIONS (2)
  - Dissociation [Recovered/Resolved with Sequelae]
  - Delirium [Recovered/Resolved with Sequelae]

NARRATIVE: CASE EVENT DATE: 20160728
